FAERS Safety Report 12457645 (Version 5)
Quarter: 2016Q3

REPORT INFORMATION
  Report Type: Spontaneous
  Country: FR (occurrence: FR)
  Receive Date: 20160610
  Receipt Date: 20160913
  Transmission Date: 20161109
  Serious: Yes (Death, Hospitalization, Other)
  Sender: FDA-Public Use
  Company Number: FR-GILEAD-2016-0217009

PATIENT
  Age: 48 Year
  Sex: Male
  Weight: 71 kg

DRUGS (9)
  1. AMITRIPTYLINE [Concomitant]
     Active Substance: AMITRIPTYLINE
  2. CLONAZEPAM. [Concomitant]
     Active Substance: CLONAZEPAM
  3. HARVONI [Suspect]
     Active Substance: LEDIPASVIR\SOFOSBUVIR
     Indication: HEPATITIS C
     Dosage: 1 UNK, UNK
     Route: 065
     Dates: start: 20141215, end: 20150308
  4. ALPRAZOLAM. [Concomitant]
     Active Substance: ALPRAZOLAM
  5. TRAMADOL + ACETAMINOFEN [Concomitant]
  6. TRIMEBUTINE [Concomitant]
     Active Substance: TRIMEBUTINE
  7. ZOLPIDEM [Concomitant]
     Active Substance: ZOLPIDEM\ZOLPIDEM TARTRATE
  8. LERCANIDIPINE [Concomitant]
     Active Substance: LERCANIDIPINE
  9. ZOPICLONE [Concomitant]
     Active Substance: ZOPICLONE

REACTIONS (7)
  - Cardio-respiratory arrest [Unknown]
  - Polyneuropathy [Unknown]
  - Altered state of consciousness [Unknown]
  - Cyanosis [Unknown]
  - Intestinal infarction [Fatal]
  - Abdominal pain upper [Unknown]
  - Abdominal pain [Fatal]

NARRATIVE: CASE EVENT DATE: 20150419
